FAERS Safety Report 9478167 (Version 2)
Quarter: 2013Q3

REPORT INFORMATION
  Report Type: Spontaneous
  Country: AU (occurrence: AU)
  Receive Date: 20130827
  Receipt Date: 20130905
  Transmission Date: 20140515
  Serious: Yes (Hospitalization, Other)
  Sender: FDA-Public Use
  Company Number: AU-PFIZER INC-2013244108

PATIENT
  Age: 48 Year
  Sex: Male

DRUGS (5)
  1. SULFASALAZINE [Suspect]
     Dosage: 1.5 GRAMS DAILY
     Dates: start: 20121115, end: 20121221
  2. MESALAZINE [Suspect]
     Dosage: 2 GRAMS DAILY
     Dates: start: 20121115, end: 20121221
  3. COLIFOAM [Concomitant]
     Dosage: UNK
     Route: 054
  4. PREDNISOLONE [Concomitant]
     Dosage: 40 MG DAILY
     Dates: start: 20121115
  5. RABEPRAZOLE SODIUM [Concomitant]
     Dosage: 20 MG DAILY

REACTIONS (1)
  - Febrile neutropenia [Recovered/Resolved]
